FAERS Safety Report 4339872-8 (Version None)
Quarter: 2004Q2

REPORT INFORMATION
  Report Type: 
  Country: None (occurrence: None)
  Receive Date: 20040416
  Receipt Date: 20040213
  Transmission Date: 20050107
  Serious: Yes (Death)
  Sender: FDA-Public Use
  Company Number: US-BRISTOL-MYERS SQUIBB COMPANY-12505186

PATIENT
  Age: 48 Year
  Sex: Female

DRUGS (4)
  1. MEGACE [Suspect]
     Indication: INCREASED APPETITE
     Dosage: ORAL SOLUTION
     Route: 048
     Dates: start: 20031112, end: 20040119
  2. OXYCONTIN [Concomitant]
  3. KYTRIL [Concomitant]
  4. GEMCITABINE [Concomitant]

REACTIONS (2)
  - HEPATIC FAILURE [None]
  - PANCREATIC CARCINOMA METASTATIC [None]
